FAERS Safety Report 8413729-5 (Version None)
Quarter: 2012Q2

REPORT INFORMATION
  Report Type: 
  Country: None (occurrence: None)
  Receive Date: 20120605
  Receipt Date: 20120530
  Transmission Date: 20120825
  Serious: Yes (Hospitalization)
  Sender: FDA-Public Use
  Company Number: US-PFIZER INC-2012113040

PATIENT
  Sex: Male
  Weight: 68.027 kg

DRUGS (4)
  1. LIPITOR [Suspect]
     Indication: BLOOD CHOLESTEROL INCREASED
     Dosage: EITHER 20 MG OR 40 MG, DAILY
  2. CHONDROITIN/GLUCOSAMINE [Concomitant]
     Indication: ARTHRITIS
     Dosage: [GLUCOSAMINE 1500/ CHONDROITIN 1200 MG], TWO TABLETS DAILY
  3. OMEPRAZOLE [Concomitant]
     Indication: HIATUS HERNIA
     Dosage: 20 MG, DAILY
  4. METOPROLOL [Concomitant]
     Indication: PULSE ABNORMAL
     Dosage: 12.5 MG, DAILY

REACTIONS (3)
  - DRUG INEFFECTIVE [None]
  - TRANSIENT ISCHAEMIC ATTACK [None]
  - PERIPHERAL ARTERIAL OCCLUSIVE DISEASE [None]
